FAERS Safety Report 6864388-4 (Version None)
Quarter: 2010Q3

REPORT INFORMATION
  Report Type: 
  Country: None (occurrence: None)
  Receive Date: 20100721
  Receipt Date: 20080708
  Transmission Date: 20110219
  Serious: Yes (Other)
  Sender: FDA-Public Use
  Company Number: US-PFIZER INC-2008026009

PATIENT
  Sex: Male

DRUGS (2)
  1. CHANTIX [Suspect]
     Indication: SMOKING CESSATION THERAPY
     Dates: start: 20080301
  2. METFORMIN [Concomitant]
     Dates: end: 20080101

REACTIONS (4)
  - CONSTIPATION [None]
  - DIZZINESS POSTURAL [None]
  - EATING DISORDER [None]
  - INSOMNIA [None]
